FAERS Safety Report 10177239 (Version 1)
Quarter: 2014Q2

REPORT INFORMATION
  Report Type: Spontaneous
  Country: US (occurrence: US)
  Receive Date: 20140516
  Receipt Date: 20140516
  Transmission Date: 20141212
  Serious: Yes (Hospitalization, Other)
  Sender: FDA-Public Use
  Company Number: PHHY2014US057624

PATIENT
  Age: 49 Year
  Sex: Female

DRUGS (1)
  1. LOPERAMIDE [Suspect]
     Indication: DIARRHOEA
     Route: 042

REACTIONS (3)
  - Dehydration [Unknown]
  - Diarrhoea [Recovering/Resolving]
  - Drug ineffective [Unknown]
